FAERS Safety Report 15689479 (Version 2)
Quarter: 2018Q4

REPORT INFORMATION
  Report Type: Spontaneous
  Country: FR (occurrence: FR)
  Receive Date: 20181205
  Receipt Date: 20181224
  Transmission Date: 20190205
  Serious: Yes (Hospitalization, Other)
  Sender: FDA-Public Use
  Company Number: PHHY2018FR169631

PATIENT
  Sex: Female

DRUGS (3)
  1. VALPROIC ACID. [Suspect]
     Active Substance: VALPROIC ACID
     Indication: CONVULSION NEONATAL
     Dosage: 20 MG/KG, QD
     Route: 048
  2. PHENOBARBITAL. [Concomitant]
     Active Substance: PHENOBARBITAL
     Indication: CONVULSION NEONATAL
     Dosage: UNK
     Route: 042
  3. VALPROIC ACID. [Suspect]
     Active Substance: VALPROIC ACID
     Dosage: 30 MG/KG DAILY;
     Route: 048

REACTIONS (6)
  - Hyperammonaemic encephalopathy [Recovered/Resolved]
  - Hypotony of eye [Unknown]
  - Encephalopathy [Not Recovered/Not Resolved]
  - Hyperammonaemia [Recovered/Resolved with Sequelae]
  - Visual impairment [Unknown]
  - Overdose [Unknown]
